FAERS Safety Report 5952140-3 (Version None)
Quarter: 2008Q4

REPORT INFORMATION
  Report Type: 
  Country: None (occurrence: None)
  Receive Date: 20081113
  Receipt Date: 20080623
  Transmission Date: 20090506
  Serious: No
  Sender: FDA-Public Use
  Company Number: A0734348A

PATIENT
  Sex: Female

DRUGS (2)
  1. COREG [Suspect]
     Indication: LEFT VENTRICULAR DYSFUNCTION
     Dosage: 3.125MG TWICE PER DAY
     Route: 048
     Dates: start: 20070601
  2. UNKNOWN [Concomitant]

REACTIONS (1)
  - WEIGHT DECREASED [None]
